FAERS Safety Report 10009865 (Version 2)
Quarter: 2014Q1

REPORT INFORMATION
  Report Type: Spontaneous
  Country: US (occurrence: US)
  Receive Date: 20140312
  Receipt Date: 20140312
  Transmission Date: 20141002
  Serious: No
  Sender: FDA-Public Use
  Company Number: US-INCYTE CORPORATION-2013IN000258

PATIENT
  Age: 77 Year
  Sex: Female
  Weight: 80.73 kg

DRUGS (2)
  1. JAKAFI [Suspect]
     Indication: MYELOFIBROSIS
     Dosage: 20 MG, BID
     Dates: start: 201212
  2. ALLOPURINOL [Concomitant]

REACTIONS (4)
  - Fluid retention [Unknown]
  - Nocturia [Unknown]
  - Blood potassium increased [Unknown]
  - Weight increased [Unknown]
